FAERS Safety Report 5420169-X (Version None)
Quarter: 2007Q3

REPORT INFORMATION
  Report Type: 
  Country: None (occurrence: None)
  Receive Date: 20070820
  Receipt Date: 20070807
  Transmission Date: 20080115
  Serious: No
  Sender: FDA-Public Use
  Company Number: US-BOEHRINGER INGELHEIM PHARMACEUTICALS, INC.-2007-BP-07885BP

PATIENT
  Age: 5 Year
  Sex: Male
  Weight: 20 kg

DRUGS (3)
  1. FLOMAX [Suspect]
     Indication: NEUROGENIC BLADDER
     Dates: start: 20060601
  2. DITROPAN [Concomitant]
  3. SULFATRIM [Concomitant]

REACTIONS (1)
  - ABNORMAL FAECES [None]
